FAERS Safety Report 4604193-2 (Version None)
Quarter: 2005Q1

REPORT INFORMATION
  Report Type: 
  Country: None (occurrence: None)
  Receive Date: 20050214
  Receipt Date: 20050106
  Transmission Date: 20050727
  Serious: No
  Sender: FDA-Public Use
  Company Number: USA050187769

PATIENT
  Age: 83 Year
  Sex: Male

DRUGS (5)
  1. CIALIS [Suspect]
     Dosage: 20 MG
  2. LIPITOR [Concomitant]
  3. ATENOLOL [Concomitant]
  4. FLOMAX MR (TAMSULOSIN HYDROCHLORIDE) [Concomitant]
  5. LEVOXYL [Concomitant]

REACTIONS (2)
  - BLOOD DISORDER [None]
  - THERAPEUTIC RESPONSE DECREASED [None]
